FAERS Safety Report 19903443 (Version 1)
Quarter: 2021Q4

REPORT INFORMATION
  Report Type: Report from Study
  Country: None (occurrence: US)
  Receive Date: 20211001
  Receipt Date: 20211001
  Transmission Date: 20220303
  Serious: Yes (Other)
  Sender: FDA-Public Use
  Company Number: US-ABBVIE-21K-163-4100851-00

PATIENT
  Sex: Female

DRUGS (1)
  1. SKYRIZI [Suspect]
     Active Substance: RISANKIZUMAB-RZAA
     Indication: Psoriasis
     Dosage: INJECT 150 MG UNDER THE SKIN AT WEEK 4, AND THEN EVERY 12 WEEKS THEREAFTER
     Route: 058
     Dates: start: 20191023

REACTIONS (2)
  - Arthropathy [Unknown]
  - Arthritis [Unknown]
